FAERS Safety Report 8900940 (Version 7)
Quarter: 2013Q4

REPORT INFORMATION
  Report Type: Spontaneous
  Country: US (occurrence: US)
  Receive Date: 20121109
  Receipt Date: 20131121
  Transmission Date: 20140711
  Serious: Yes (Hospitalization, Other)
  Sender: FDA-Public Use
  Company Number: US-009507513-1206USA04845

PATIENT
  Sex: Female

DRUGS (7)
  1. FOSAMAX [Suspect]
     Indication: OSTEOPOROSIS
     Dosage: 10 MG, QD
     Route: 048
     Dates: start: 20000503, end: 20000706
  2. FOSAMAX [Suspect]
     Dosage: 70 MG, QW
     Route: 048
  3. FOSAMAX [Suspect]
     Indication: OSTEOPOROSIS
     Dosage: 70 MG, QW
     Route: 048
     Dates: start: 2008, end: 2012
  4. ALENDRONATE SODIUM [Suspect]
     Indication: OSTEOPOROSIS
     Dosage: 70 MG, QW
     Route: 048
     Dates: start: 2008, end: 2012
  5. COREG [Concomitant]
  6. COUMADIN [Concomitant]
     Indication: PULMONARY EMBOLISM
     Dosage: 5 MG M,T,F,S,S-7.5 MG W
     Route: 048
     Dates: start: 1990
  7. COUMADIN [Concomitant]
     Indication: THROMBOPHLEBITIS

REACTIONS (44)
  - Femur fracture [Unknown]
  - Intramedullary rod insertion [Unknown]
  - Open reduction of fracture [Unknown]
  - Urinary tract infection enterococcal [Recovered/Resolved]
  - Hip surgery [Unknown]
  - Hip arthroplasty [Unknown]
  - Rotator cuff repair [Unknown]
  - Renal failure chronic [Not Recovered/Not Resolved]
  - Pelvic fracture [Unknown]
  - Pelvic fracture [Unknown]
  - Chest pain [Unknown]
  - Pulmonary embolism [Unknown]
  - Metabolic encephalopathy [Recovered/Resolved]
  - Cardiomyopathy [Unknown]
  - Haemorrhagic anaemia [Recovered/Resolved]
  - Anticoagulant therapy [Unknown]
  - Ventricular tachycardia [Unknown]
  - Hypertensive heart disease [Unknown]
  - Ejection fraction decreased [Unknown]
  - Anaemia of chronic disease [Unknown]
  - Atrial fibrillation [Recovered/Resolved]
  - Fractured sacrum [Unknown]
  - Diverticulitis [Recovered/Resolved]
  - Asthenia [Unknown]
  - Constipation [Recovered/Resolved]
  - Exercise test abnormal [Unknown]
  - Mitral valve incompetence [Unknown]
  - Mitral valve prolapse [Unknown]
  - Ventricular arrhythmia [Unknown]
  - Electrocardiogram abnormal [Unknown]
  - Periodontal disease [Unknown]
  - Hypovitaminosis [Unknown]
  - Cardiac disorder [Unknown]
  - Cardiac failure chronic [Unknown]
  - Low turnover osteopathy [Unknown]
  - Appendicectomy [Unknown]
  - Breast cyst excision [Unknown]
  - Rotator cuff syndrome [Unknown]
  - Shoulder operation [Unknown]
  - Fall [Unknown]
  - Fatigue [Unknown]
  - Musculoskeletal chest pain [Unknown]
  - Joint swelling [Unknown]
  - Arthralgia [Unknown]
